FAERS Safety Report 13996330 (Version 2)
Quarter: 2017Q4

REPORT INFORMATION
  Report Type: Report from Study
  Country: US (occurrence: US)
  Receive Date: 20170921
  Receipt Date: 20171006
  Transmission Date: 20180321
  Serious: Yes (Other)
  Sender: FDA-Public Use
  Company Number: US-AMGEN-USASL2017140686

PATIENT
  Age: 62 Year
  Sex: Male

DRUGS (1)
  1. REPATHA [Suspect]
     Active Substance: EVOLOCUMAB
     Indication: PRODUCT USED FOR UNKNOWN INDICATION
     Dosage: 140 MG, Q2WK
     Route: 065

REACTIONS (8)
  - Pruritus [Unknown]
  - Eye swelling [Unknown]
  - Ankylosing spondylitis [Unknown]
  - Eye pruritus [Unknown]
  - Pyrexia [Recovered/Resolved]
  - Inappropriate schedule of drug administration [Unknown]
  - Eye irritation [Unknown]
  - Decreased appetite [Unknown]

NARRATIVE: CASE EVENT DATE: 201708
